FAERS Safety Report 15979572 (Version 1)
Quarter: 2019Q1

REPORT INFORMATION
  Report Type: Spontaneous
  Country: GR (occurrence: GR)
  Receive Date: 20190219
  Receipt Date: 20190219
  Transmission Date: 20190418
  Serious: Yes (Hospitalization)
  Sender: FDA-Public Use
  Company Number: GR-ELI_LILLY_AND_COMPANY-GR201902007933

PATIENT
  Age: 8 Year
  Sex: Female

DRUGS (4)
  1. LADOSE [Suspect]
     Active Substance: FLUOXETINE HYDROCHLORIDE
     Indication: ANOREXIA NERVOSA
     Dosage: 10 MG, DAILY
     Route: 065
     Dates: start: 20190127
  2. LADOSE [Suspect]
     Active Substance: FLUOXETINE HYDROCHLORIDE
     Dosage: 10 MG, DAILY
     Route: 065
  3. LADOSE [Suspect]
     Active Substance: FLUOXETINE HYDROCHLORIDE
     Indication: COMPULSIONS
     Dosage: 20 MG, DAILY
     Route: 065
  4. LADOSE [Suspect]
     Active Substance: FLUOXETINE HYDROCHLORIDE
     Dosage: 10 MG, OTHER (EVERY OTHER DAY)
     Route: 065

REACTIONS (3)
  - Disease progression [Not Recovered/Not Resolved]
  - Mydriasis [Not Recovered/Not Resolved]
  - Atypical pneumonia [Recovered/Resolved]

NARRATIVE: CASE EVENT DATE: 20190212
